FAERS Safety Report 7301095-8 (Version None)
Quarter: 2011Q1

REPORT INFORMATION
  Report Type: 
  Country: None (occurrence: None)
  Receive Date: 20110218
  Receipt Date: 20110214
  Transmission Date: 20110831
  Serious: Yes (Other)
  Sender: FDA-Public Use
  Company Number: TW-BRISTOL-MYERS SQUIBB COMPANY-15546948

PATIENT
  Sex: Male

DRUGS (3)
  1. BARACLUDE [Suspect]
     Indication: HEPATITIS B
     Dates: start: 20090701
  2. ZEFFIX [Concomitant]
  3. ADEFOVIR DIPIVOXIL KIT [Concomitant]

REACTIONS (1)
  - HEPATIC NEOPLASM MALIGNANT [None]
